FAERS Safety Report 20589691 (Version 1)
Quarter: 2022Q1

REPORT INFORMATION
  Report Type: Report from Study
  Country: US (occurrence: US)
  Receive Date: 20220314
  Receipt Date: 20220314
  Transmission Date: 20220424
  Serious: Yes (Death, Hospitalization)
  Sender: FDA-Public Use
  Company Number: US-EXELIXIS-CABO-22049583

PATIENT
  Age: 22 Year
  Sex: Female

DRUGS (28)
  1. CABOMETYX [Suspect]
     Active Substance: CABOZANTINIB S-MALATE
     Indication: Ewing^s sarcoma metastatic
     Dosage: 60 MG, QD
     Route: 048
     Dates: start: 20211013
  2. CABOMETYX [Suspect]
     Active Substance: CABOZANTINIB S-MALATE
     Dosage: 60 MG, QOD
     Route: 048
     Dates: end: 20220124
  3. AMICAR [Concomitant]
     Active Substance: AMINOCAPROIC ACID
  4. BACTRIM DS [Concomitant]
     Active Substance: SULFAMETHOXAZOLE\TRIMETHOPRIM
  5. BENADRYL [Concomitant]
     Active Substance: DIPHENHYDRAMINE HYDROCHLORIDE
  6. CHOLECALCIFEROL [Concomitant]
     Active Substance: CHOLECALCIFEROL
  7. CYMBALTA [Concomitant]
     Active Substance: DULOXETINE HYDROCHLORIDE
  8. DOXYCYCLINE [Concomitant]
     Active Substance: DOXYCYCLINE
  9. FLUCONAZOLE [Concomitant]
     Active Substance: FLUCONAZOLE
  10. LEVAQUIN [Concomitant]
     Active Substance: LEVOFLOXACIN
  11. LORATADINE [Concomitant]
     Active Substance: LORATADINE
  12. MELATONIN [Concomitant]
     Active Substance: MELATONIN
     Indication: Insomnia
  13. MIRALAX [Concomitant]
     Active Substance: POLYETHYLENE GLYCOL 3350
  14. NEXPLANON [Concomitant]
     Active Substance: ETONOGESTREL
  15. OMEPRAZOLE [Concomitant]
     Active Substance: OMEPRAZOLE
  16. OXYCODONE [Concomitant]
     Active Substance: OXYCODONE
     Indication: Pain
  17. PREDNISONE [Concomitant]
     Active Substance: PREDNISONE
  18. PROPANEDIOL LIQ [Concomitant]
  19. QVAR REDIHALER [Concomitant]
     Active Substance: BECLOMETHASONE DIPROPIONATE
  20. REGLAN [Concomitant]
     Active Substance: METOCLOPRAMIDE HYDROCHLORIDE
  21. VENTOLIN HFA [Concomitant]
     Active Substance: ALBUTEROL SULFATE
     Indication: Wheezing
  22. CLARITIN [Concomitant]
     Active Substance: LORATADINE
     Indication: Hypersensitivity
  23. REMERON [Concomitant]
     Active Substance: MIRTAZAPINE
  24. Biotene dry mouth [Concomitant]
  25. FLEXERIL [Concomitant]
     Active Substance: CYCLOBENZAPRINE HYDROCHLORIDE
     Indication: Muscle spasms
  26. CYPROHEPTADINE [Concomitant]
     Active Substance: CYPROHEPTADINE
  27. TYLENOL [Concomitant]
     Active Substance: ACETAMINOPHEN
     Indication: Pain
  28. BMX COMPOUNDED SUSPENSION [Concomitant]
     Indication: Mucosal inflammation

REACTIONS (19)
  - Pericardial effusion [Unknown]
  - Pleural effusion [Unknown]
  - Cancer pain [Unknown]
  - Respiratory failure [Fatal]
  - Metastases to lung [Fatal]
  - Gallbladder disorder [Recovered/Resolved]
  - Hypoaesthesia oral [Unknown]
  - Tooth disorder [Unknown]
  - Anxiety [Unknown]
  - Weight decreased [Unknown]
  - Dyspnoea exertional [Unknown]
  - Blood bilirubin increased [Unknown]
  - Alanine aminotransferase increased [Unknown]
  - Aspartate aminotransferase increased [Unknown]
  - Platelet count decreased [Unknown]
  - Vomiting [Unknown]
  - Thrombocytopenia [Unknown]
  - Off label use [Unknown]
  - Inappropriate schedule of product administration [Unknown]

NARRATIVE: CASE EVENT DATE: 20211210
